FAERS Safety Report 8508110-4 (Version None)
Quarter: 2012Q3

REPORT INFORMATION
  Report Type: 
  Country: None (occurrence: None)
  Receive Date: 20120713
  Receipt Date: 20120703
  Transmission Date: 20120928
  Serious: Yes (Other)
  Sender: FDA-Public Use
  Company Number: US-ELI_LILLY_AND_COMPANY-US201207001059

PATIENT
  Sex: Male

DRUGS (1)
  1. AXIRON [Suspect]
     Indication: BLOOD TESTOSTERONE DECREASED
     Dosage: 60 MG, QD
     Dates: start: 20120501

REACTIONS (18)
  - FEELING ABNORMAL [None]
  - LIBIDO DECREASED [None]
  - DEPRESSION [None]
  - EMOTIONAL DISORDER [None]
  - SOMNOLENCE [None]
  - SUICIDAL IDEATION [None]
  - INSOMNIA [None]
  - BLOOD TESTOSTERONE INCREASED [None]
  - FATIGUE [None]
  - ANGER [None]
  - BLOOD TESTOSTERONE DECREASED [None]
  - DIZZINESS [None]
  - ASTHENIA [None]
  - VERTIGO [None]
  - VISUAL ACUITY REDUCED [None]
  - MIGRAINE [None]
  - DYSARTHRIA [None]
  - CONFUSIONAL STATE [None]
